FAERS Safety Report 9763643 (Version 1)
Quarter: 2013Q4

REPORT INFORMATION
  Report Type: Spontaneous
  Country: US (occurrence: US)
  Receive Date: 20131216
  Receipt Date: 20131216
  Transmission Date: 20140711
  Serious: No
  Sender: FDA-Public Use
  Company Number: US-BIOGENIDEC-2013BI108998

PATIENT
  Age: 37 Year
  Sex: Female

DRUGS (11)
  1. TECFIDERA [Suspect]
     Indication: PRODUCT USED FOR UNKNOWN INDICATION
     Dates: start: 201307
  2. TECFIDERA [Suspect]
     Indication: PRODUCT USED FOR UNKNOWN INDICATION
     Route: 048
  3. OMPERAZOLE [Concomitant]
  4. AMANTADINE [Concomitant]
  5. TRAMADOL HCL [Concomitant]
  6. CLONAZEPAM [Concomitant]
  7. B COMPLEX [Concomitant]
  8. VIT D [Concomitant]
  9. VIT E [Concomitant]
  10. BACLOFEN [Concomitant]
  11. CELEBREX [Concomitant]

REACTIONS (1)
  - Hyperchlorhydria [Unknown]
